FAERS Safety Report 11069793 (Version 1)
Quarter: 2015Q2

REPORT INFORMATION
  Report Type: Spontaneous
  Country: SE (occurrence: SE)
  Receive Date: 20150427
  Receipt Date: 20150427
  Transmission Date: 20150821
  Serious: Yes (Hospitalization)
  Sender: FDA-Public Use
  Company Number: SE-TEVA-556756ISR

PATIENT
  Age: 56 Year
  Sex: Female

DRUGS (5)
  1. STESOLID 2 MG TABLETT [Concomitant]
     Active Substance: DIAZEPAM
     Route: 048
  2. SEROQUEL [Suspect]
     Active Substance: QUETIAPINE FUMARATE
     Route: 048
  3. VENLAFAXINE [Concomitant]
     Active Substance: VENLAFAXINE HYDROCHLORIDE
     Route: 048
  4. MIRTAZAPINE. [Suspect]
     Active Substance: MIRTAZAPINE
     Route: 048
  5. PROPAVAN 25 MG TABLETT [Concomitant]
     Active Substance: PROPIOMAZINE
     Route: 048

REACTIONS (1)
  - Toxicity to various agents [Recovered/Resolved]
